FAERS Safety Report 5145311-X (Version None)
Quarter: 2006Q4

REPORT INFORMATION
  Report Type: 
  Country: None (occurrence: None)
  Receive Date: 20061101
  Receipt Date: 20061026
  Transmission Date: 20070319
  Serious: Yes (Death)
  Sender: FDA-Public Use
  Company Number: EM2006-0526

PATIENT
  Sex: Male

DRUGS (5)
  1. MACROLIN [Suspect]
     Indication: DRUG USE FOR UNKNOWN INDICATION
     Dosage: UNK, UNK, UNK
     Dates: start: 20050228
  2. MACROLIN [Suspect]
     Indication: DRUG USE FOR UNKNOWN INDICATION
     Dosage: UNK, UNK, UNK
     Dates: start: 20050427
  3. MACROLIN [Suspect]
     Indication: DRUG USE FOR UNKNOWN INDICATION
     Dosage: UNK, UNK, UNK
     Dates: start: 20050620
  4. MACROLIN [Suspect]
  5. MACROLIN [Suspect]

REACTIONS (1)
  - DEATH [None]
